FAERS Safety Report 7620148 (Version 4)
Quarter: 2016Q4

REPORT INFORMATION
  Report Type: Spontaneous
  Country: JP (occurrence: JP)
  Receive Date: 20101007
  Receipt Date: 20161111
  Transmission Date: 20170207
  Serious: Yes (Life-Threatening, Hospitalization)
  Sender: FDA-Public Use
  Company Number: JP-JNJFOC-20101000850

PATIENT
  Age: 22 Year
  Sex: Female

DRUGS (9)
  1. BIOFERMIN R [Concomitant]
     Active Substance: BACILLUS SUBTILIS\LACTOBACILLUS ACIDOPHILUS\STREPTOCOCCUS FAECAIS
     Indication: ENTEROCOLITIS
     Route: 048
     Dates: start: 20091003, end: 20091007
  2. ZITHROMAC [Concomitant]
     Active Substance: AZITHROMYCIN DIHYDRATE
     Indication: ENTEROCOLITIS
     Route: 048
     Dates: start: 20091003, end: 20091007
  3. CRAVIT [Suspect]
     Active Substance: LEVOFLOXACIN
     Indication: ENTEROCOLITIS
     Route: 048
     Dates: start: 20090929, end: 20091003
  4. ANTI-DIARRHEAL MEDICATION (BERBERINE HYDROCHLORIDE) [Suspect]
     Active Substance: BERBERINE CHLORIDE
     Indication: DIARRHOEA
     Route: 065
     Dates: start: 20090929
  5. LOPEMIN [Concomitant]
     Active Substance: LOPERAMIDE HYDROCHLORIDE
     Indication: ENTEROCOLITIS
     Route: 048
     Dates: start: 20090929, end: 20091003
  6. CRAVIT [Suspect]
     Active Substance: LEVOFLOXACIN
     Indication: VIRAL INFECTION
     Route: 048
     Dates: start: 20090929, end: 20091003
  7. MILLACT [Concomitant]
     Indication: ENTEROCOLITIS
     Route: 048
     Dates: start: 20090929, end: 20091003
  8. CRAVIT [Suspect]
     Active Substance: LEVOFLOXACIN
     Indication: COLITIS
     Route: 048
     Dates: start: 20090929, end: 20091003
  9. STEROIDS NOS [Concomitant]
     Active Substance: UNSPECIFIED INGREDIENT

REACTIONS (5)
  - Colitis ulcerative [Unknown]
  - Hypersensitivity vasculitis [Recovering/Resolving]
  - Henoch-Schonlein purpura [Unknown]
  - Purpura fulminans [Recovered/Resolved]
  - Haematochezia [Recovering/Resolving]

NARRATIVE: CASE EVENT DATE: 20090930
